FAERS Safety Report 24693306 (Version 2)
Quarter: 2025Q3

REPORT INFORMATION
  Report Type: Report from Study
  Country: US (occurrence: US)
  Receive Date: 20241203
  Receipt Date: 20250803
  Transmission Date: 20251020
  Serious: Yes (Other)
  Sender: ALEXION PHARMACEUTICALS
  Company Number: US-AstraZeneca-CH-00757152A

PATIENT
  Age: 56 Year
  Sex: Female

DRUGS (1)
  1. CAPIVASERTIB [Suspect]
     Active Substance: CAPIVASERTIB
     Indication: Breast cancer female
     Dosage: 200MG, TAKE 2 TABLETS TWICE DAILY FOR 4 DAYS ON THEN 3 DAYS OFF EACH WEEK
     Dates: start: 20241117

REACTIONS (2)
  - Hypogeusia [Unknown]
  - Neuropathy peripheral [Unknown]
